FAERS Safety Report 17675179 (Version 1)
Quarter: 2020Q2

REPORT INFORMATION
  Report Type: Spontaneous
  Country: US (occurrence: US)
  Receive Date: 20200415
  Receipt Date: 20200415
  Transmission Date: 20200714
  Serious: Yes (Hospitalization)
  Sender: FDA-Public Use
  Company Number: None

PATIENT
  Age: 67 Year
  Sex: Female
  Weight: 139.5 kg

DRUGS (17)
  1. OMEPRAZOLE 40MG [Concomitant]
     Active Substance: OMEPRAZOLE
  2. CYANOCOBALAMIN 1000MCG/ML [Concomitant]
  3. XGEVA 120 MG/1.7ML [Concomitant]
  4. RAMIPRIL 5 MG [Concomitant]
     Active Substance: RAMIPRIL
  5. VITAMIN C  500MG [Concomitant]
  6. ASPIRIN 81MG [Concomitant]
     Active Substance: ASPIRIN
  7. CARVEDILOL 6.25MG [Concomitant]
     Active Substance: CARVEDILOL
  8. GABAPENTIN 300MG [Concomitant]
     Active Substance: GABAPENTIN
  9. NYSTATIN 100000 UNIT/GM [Concomitant]
  10. IBRANCE [Suspect]
     Active Substance: PALBOCICLIB
     Indication: BREAST CANCER FEMALE
     Route: 048
     Dates: start: 20190820
  11. METFORMIN [Concomitant]
     Active Substance: METFORMIN HYDROCHLORIDE
  12. GLIMEPIRIDE 4 MG [Concomitant]
     Active Substance: GLIMEPIRIDE
  13. NAPROXEN 220MG [Concomitant]
  14. VITAMIN D 2000 UNIT [Concomitant]
  15. LETROZOLE 2.5MG [Concomitant]
     Active Substance: LETROZOLE
  16. TRADJENTA [Concomitant]
     Active Substance: LINAGLIPTIN
  17. SIMVASTATIN 20MG [Concomitant]
     Active Substance: SIMVASTATIN

REACTIONS (1)
  - Coronavirus infection [None]

NARRATIVE: CASE EVENT DATE: 20200401
